FAERS Safety Report 7914874-0 (Version None)
Quarter: 2011Q4

REPORT INFORMATION
  Report Type: 
  Country: None (occurrence: None)
  Receive Date: 20111115
  Receipt Date: 20111109
  Transmission Date: 20120403
  Serious: Yes (Hospitalization)
  Sender: FDA-Public Use
  Company Number: JP-ROCHE-1008947

PATIENT
  Sex: Female
  Weight: 48 kg

DRUGS (8)
  1. CLINDAMYCIN PHOSPHATE [Concomitant]
     Indication: RASH
     Dosage: PROPER PROPER QUANTITY
     Route: 061
     Dates: start: 20111019
  2. HYALEIN [Concomitant]
     Indication: GLAUCOMA
     Dosage: ONE DROPX5
     Route: 047
     Dates: start: 20110401
  3. AVASTIN [Suspect]
     Indication: NON-SMALL CELL LUNG CANCER
     Route: 042
     Dates: start: 20111006, end: 20111006
  4. TARCEVA [Suspect]
     Indication: NON-SMALL CELL LUNG CANCER
     Route: 048
     Dates: start: 20111006, end: 20111028
  5. MICARDIS [Concomitant]
     Indication: HYPERTENSION
     Route: 048
     Dates: start: 20111019
  6. AMLODIPINE [Concomitant]
     Indication: HYPERTENSION
     Route: 048
     Dates: start: 20111004
  7. LENDORMIN D [Concomitant]
     Indication: INSOMNIA
     Route: 048
     Dates: start: 20111008
  8. KARY UNI [Concomitant]
     Indication: CATARACT
     Dosage: 1-2 DROPSX3
     Route: 047
     Dates: start: 20100401

REACTIONS (1)
  - PNEUMOTHORAX [None]
